FAERS Safety Report 12343641 (Version 6)
Quarter: 2017Q1

REPORT INFORMATION
  Report Type: Report from Study
  Country: US (occurrence: US)
  Receive Date: 20160506
  Receipt Date: 20170113
  Transmission Date: 20170428
  Serious: Yes (Death, Hospitalization, Other)
  Sender: FDA-Public Use
  Company Number: US-ASTRAZENECA-2015SF31103

PATIENT
  Age: 55 Year
  Sex: Female

DRUGS (2)
  1. TAGRISSO [Suspect]
     Active Substance: OSIMERTINIB
     Indication: LUNG CARCINOMA CELL TYPE UNSPECIFIED STAGE 0
     Route: 048
     Dates: start: 20160326
  2. IRESSA [Suspect]
     Active Substance: GEFITINIB
     Indication: LUNG CARCINOMA CELL TYPE UNSPECIFIED STAGE 0
     Route: 048

REACTIONS (24)
  - Death [Fatal]
  - Colitis [Recovering/Resolving]
  - Rash pruritic [Not Recovered/Not Resolved]
  - Nausea [Not Recovered/Not Resolved]
  - Stomatitis [Recovering/Resolving]
  - Fatigue [Recovering/Resolving]
  - Dry skin [Recovering/Resolving]
  - Headache [Recovering/Resolving]
  - Viral infection [Recovering/Resolving]
  - Dizziness [Recovering/Resolving]
  - Weight decreased [Recovering/Resolving]
  - Decreased appetite [Recovering/Resolving]
  - Rash [Recovering/Resolving]
  - Urinary tract infection [Recovering/Resolving]
  - Glossodynia [Recovering/Resolving]
  - Large intestinal haemorrhage [Recovering/Resolving]
  - Arrhythmia [Recovering/Resolving]
  - Depression [Unknown]
  - Productive cough [Recovering/Resolving]
  - Infection [Recovering/Resolving]
  - Dyspnoea [Unknown]
  - Palpitations [Unknown]
  - Diarrhoea [Recovering/Resolving]
  - Hypotension [Recovering/Resolving]

NARRATIVE: CASE EVENT DATE: 2016
